FAERS Safety Report 6020786-2 (Version None)
Quarter: 2008Q4

REPORT INFORMATION
  Report Type: 
  Country: None (occurrence: None)
  Receive Date: 20081229
  Receipt Date: 20081218
  Transmission Date: 20090506
  Serious: No
  Sender: FDA-Public Use
  Company Number: US-JNJFOC-20081205524

PATIENT
  Sex: Male
  Weight: 107.05 kg

DRUGS (7)
  1. DURAGESIC-100 [Suspect]
     Route: 062
  2. DURAGESIC-100 [Suspect]
     Indication: MUSCULOSKELETAL PAIN
     Route: 062
  3. LYRICA [Concomitant]
     Indication: PAIN
     Route: 048
  4. MOBIC [Concomitant]
     Indication: PAIN
     Route: 048
  5. ZANAFLEX [Concomitant]
     Indication: PAIN
     Route: 048
  6. LIDODERM [Concomitant]
     Indication: MUSCULOSKELETAL PAIN
     Route: 062
  7. NORCO [Concomitant]
     Indication: PAIN
     Dosage: 10/325 MG
     Route: 048

REACTIONS (3)
  - APPLICATION SITE EROSION [None]
  - INSOMNIA [None]
  - WRONG TECHNIQUE IN DRUG USAGE PROCESS [None]
